FAERS Safety Report 8902032 (Version 2)
Quarter: 2013Q2

REPORT INFORMATION
  Report Type: Spontaneous
  Country: DE (occurrence: DE)
  Receive Date: 20121112
  Receipt Date: 20130514
  Transmission Date: 20140414
  Serious: Yes (Other)
  Sender: FDA-Public Use
  Company Number: DE-ELI_LILLY_AND_COMPANY-DE201207008299

PATIENT
  Age: 76 Year
  Sex: Male

DRUGS (8)
  1. FORSTEO [Suspect]
     Indication: OSTEOPOROSIS
     Dosage: UNK, QD
     Route: 058
     Dates: start: 20111025
  2. CALCIUM [Concomitant]
  3. VITAMIN D [Concomitant]
  4. CANCOR [Concomitant]
  5. ZYLORIC [Concomitant]
  6. ASS [Concomitant]
  7. SIMVASTATIN [Concomitant]
  8. TEBONIN [Concomitant]

REACTIONS (3)
  - Prostate cancer [Not Recovered/Not Resolved]
  - Prostate cancer recurrent [Not Recovered/Not Resolved]
  - Prostate cancer metastatic [Not Recovered/Not Resolved]
